FAERS Safety Report 20949155 (Version 1)
Quarter: 2022Q2

REPORT INFORMATION
  Report Type: Report from Study
  Country: US (occurrence: US)
  Receive Date: 20220613
  Receipt Date: 20220613
  Transmission Date: 20220721
  Serious: Yes (Hospitalization)
  Sender: FDA-Public Use
  Company Number: US-ABBVIE-22K-163-4390109-00

PATIENT
  Sex: Male

DRUGS (1)
  1. RINVOQ [Suspect]
     Active Substance: UPADACITINIB
     Indication: Rheumatoid arthritis
     Route: 048
     Dates: end: 202201

REACTIONS (6)
  - Pain in extremity [Unknown]
  - Pain [Unknown]
  - Stress [Unknown]
  - Joint range of motion decreased [Unknown]
  - Musculoskeletal disorder [Unknown]
  - Rheumatoid arthritis [Recovered/Resolved]
